FAERS Safety Report 9786205 (Version 1)
Quarter: 2013Q4

REPORT INFORMATION
  Report Type: Spontaneous
  Country: GB (occurrence: GB)
  Receive Date: 20131227
  Receipt Date: 20131227
  Transmission Date: 20140711
  Serious: Yes (Other)
  Sender: FDA-Public Use
  Company Number: GB-BRISTOL-MYERS SQUIBB COMPANY-19921394

PATIENT
  Age: 65 Year
  Sex: Male
  Weight: 89.81 kg

DRUGS (6)
  1. BYETTA [Suspect]
     Indication: TYPE 2 DIABETES MELLITUS
     Route: 051
     Dates: start: 20131023, end: 20131101
  2. METFORMIN HCL [Concomitant]
     Dates: start: 20070101
  3. GLICLAZIDE [Concomitant]
     Dates: start: 2009
  4. RAMIPRIL [Concomitant]
     Dosage: AT NIGHT.
     Dates: start: 2003
  5. INDAPAMIDE [Concomitant]
  6. SIMVASTATIN [Concomitant]

REACTIONS (10)
  - Vomiting [Recovered/Resolved]
  - Nausea [Recovered/Resolved]
  - Headache [Recovered/Resolved]
  - Lethargy [Recovered/Resolved]
  - Asthenia [Recovered/Resolved]
  - Malaise [Recovered/Resolved]
  - Fatigue [Recovered/Resolved]
  - Yawning [Unknown]
  - Food intolerance [Unknown]
  - Decreased appetite [Recovered/Resolved]
